FAERS Safety Report 5787491-9 (Version None)
Quarter: 2008Q2

REPORT INFORMATION
  Report Type: 
  Country: None (occurrence: None)
  Receive Date: 20080623
  Receipt Date: 20080623
  Transmission Date: 20081010
  Serious: Yes (Hospitalization, Disabling)
  Sender: FDA-Public Use
  Company Number: None

PATIENT
  Sex: Male
  Weight: 70 kg

DRUGS (7)
  1. INVEGA [Suspect]
     Indication: SCHIZOPHRENIA
     Dosage: 3MG DAILY ORAL
     Route: 048
  2. RISPERDAL [Suspect]
     Indication: SCHIZOPHRENIA
     Dosage: 4MG(AM), 6MG(PM) ORAL SEVERAL YEARS
     Route: 048
  3. WARFARIN SODIUM [Concomitant]
  4. LISINOPRIL [Concomitant]
  5. CARBATROL [Concomitant]
  6. ATENOLOL [Concomitant]
  7. PHENYTOIN [Concomitant]

REACTIONS (1)
  - BASAL GANGLIA HAEMORRHAGE [None]
